FAERS Safety Report 7896433-1 (Version None)
Quarter: 2011Q4

REPORT INFORMATION
  Report Type: 
  Country: None (occurrence: None)
  Receive Date: 20111104
  Receipt Date: 20111104
  Transmission Date: 20120403
  Serious: Yes (Other)
  Sender: FDA-Public Use
  Company Number: None

PATIENT
  Age: 3 Week
  Sex: Male

DRUGS (1)
  1. IBUPROFEN [Suspect]
     Indication: PATENT DUCTUS ARTERIOSUS
     Dosage: 1 DOSE GIVEN 1 DOSE IV
     Route: 042
     Dates: start: 20110914

REACTIONS (1)
  - GASTROINTESTINAL HAEMORRHAGE [None]
